FAERS Safety Report 6629339-6 (Version None)
Quarter: 2010Q1

REPORT INFORMATION
  Report Type: 
  Country: None (occurrence: None)
  Receive Date: 20100311
  Receipt Date: 20090713
  Transmission Date: 20100710
  Serious: No
  Sender: FDA-Public Use
  Company Number: US-BIOGENIDEC-2009BI021472

PATIENT
  Sex: Female

DRUGS (1)
  1. AVONEX [Suspect]
     Indication: MULTIPLE SCLEROSIS
     Route: 030
     Dates: start: 20060201

REACTIONS (9)
  - ARTHRALGIA [None]
  - BALANCE DISORDER [None]
  - DIZZINESS [None]
  - FALL [None]
  - HEADACHE [None]
  - JOINT SPRAIN [None]
  - MULTIPLE SCLEROSIS [None]
  - ORTHOPEDIC PROCEDURE [None]
  - VISUAL IMPAIRMENT [None]
